FAERS Safety Report 24539679 (Version 1)
Quarter: 2024Q4

REPORT INFORMATION
  Report Type: Spontaneous
  Country: RO (occurrence: RO)
  Receive Date: 20241023
  Receipt Date: 20241023
  Transmission Date: 20250114
  Serious: Yes (Other)
  Sender: FRESENIUS KABI
  Company Number: RO-BRISTOL-MYERS SQUIBB COMPANY-2024-085293

PATIENT
  Age: 49 Year
  Sex: Male

DRUGS (4)
  1. CARBOPLATIN [Suspect]
     Active Substance: CARBOPLATIN
     Indication: Bronchial neoplasm
     Dosage: ROUTE OF ADMIN: UNKNOWN?FORM OF ADMIN: UNKNOWN
     Dates: start: 202310
  2. PACLITAXEL [Suspect]
     Active Substance: PACLITAXEL
     Indication: Bronchial neoplasm
     Dosage: ROUTE OF ADMIN: UNKNOWN?FORM OF ADMIN: UNKNOWN
     Dates: start: 202310
  3. IPILIMUMAB [Suspect]
     Active Substance: IPILIMUMAB
     Indication: Bronchial neoplasm
     Dates: start: 202310
  4. NIVOLUMAB [Suspect]
     Active Substance: NIVOLUMAB
     Indication: Bronchial neoplasm
     Dates: start: 202310

REACTIONS (5)
  - Ischaemic cardiomyopathy [Unknown]
  - Rash [Recovered/Resolved]
  - Diarrhoea [Recovered/Resolved]
  - Weight increased [Unknown]
  - Thyroid disorder [Unknown]

NARRATIVE: CASE EVENT DATE: 20231001
